FAERS Safety Report 10948733 (Version 1)
Quarter: 2015Q1

REPORT INFORMATION
  Report Type: Spontaneous
  Country: US (occurrence: None)
  Receive Date: 20150226
  Receipt Date: 20150226
  Transmission Date: 20150721
  Serious: Yes (Hospitalization, Other)
  Sender: FDA-Public Use
  Company Number: TPA2010A03343

PATIENT
  Age: 62 Year
  Sex: Male
  Weight: 107.05 kg

DRUGS (5)
  1. ARIXTRA [Concomitant]
     Active Substance: FONDAPARINUX SODIUM
  2. ULORIC [Suspect]
     Active Substance: FEBUXOSTAT
     Indication: GOUT
     Route: 048
     Dates: start: 201001
  3. ACTOS PLUS MET (PIOGLITAZONE HYDROCHLORIDE, METFORMIN HYDROCHLORIDE) [Concomitant]
  4. AGGRENOX (ACETYLSALICYLOIC ACID, DIPYRIDAMOLE) [Concomitant]
  5. LYRICA [Concomitant]
     Active Substance: PREGABALIN

REACTIONS (4)
  - Dehydration [None]
  - Renal failure [None]
  - Diarrhoea [None]
  - Blood creatinine increased [None]

NARRATIVE: CASE EVENT DATE: 20100428
